FAERS Safety Report 10155739 (Version 1)
Quarter: 2014Q2

REPORT INFORMATION
  Report Type: Report from Study
  Country: US (occurrence: US)
  Receive Date: 20140506
  Receipt Date: 20140506
  Transmission Date: 20141212
  Serious: Yes (Hospitalization)
  Sender: FDA-Public Use
  Company Number: US-ABBVIE-14P-163-1231570-00

PATIENT
  Age: 17 Year
  Sex: Female

DRUGS (6)
  1. HUMIRA [Suspect]
     Indication: FISTULA
     Dates: start: 201401
  2. HUMIRA [Suspect]
  3. OXYCODONE [Suspect]
     Indication: PAIN
  4. LORAZAPAM [Concomitant]
     Indication: PRODUCT USED FOR UNKNOWN INDICATION
  5. LITHIUM [Concomitant]
     Indication: PRODUCT USED FOR UNKNOWN INDICATION
  6. AMOXICILLIN [Concomitant]
     Indication: PRODUCT USED FOR UNKNOWN INDICATION

REACTIONS (5)
  - Fistula [Not Recovered/Not Resolved]
  - Pain in extremity [Unknown]
  - Joint crepitation [Unknown]
  - Pruritus [Unknown]
  - Impaired healing [Not Recovered/Not Resolved]
